FAERS Safety Report 4319165-5 (Version None)
Quarter: 2004Q1

REPORT INFORMATION
  Report Type: 
  Country: None (occurrence: None)
  Receive Date: 20040316
  Receipt Date: 20040227
  Transmission Date: 20041129
  Serious: Yes (Death)
  Sender: FDA-Public Use
  Company Number: JP_040302714

PATIENT
  Age: 66 Year
  Sex: Male
  Weight: 70 kg

DRUGS (3)
  1. GEMZAR [Suspect]
     Indication: PANCREATIC CARCINOMA
     Dosage: 1000 MG OTHER
     Route: 050
     Dates: start: 20030324
  2. UFT [Concomitant]
  3. ... [Concomitant]

REACTIONS (2)
  - CONDITION AGGRAVATED [None]
  - PANCREATIC CARCINOMA [None]
